FAERS Safety Report 20488179 (Version 6)
Quarter: 2022Q1

REPORT INFORMATION
  Report Type: Spontaneous
  Country: US (occurrence: US)
  Receive Date: 20220218
  Receipt Date: 20220325
  Transmission Date: 20220423
  Serious: Yes (Other)
  Sender: FDA-Public Use
  Company Number: US-ORGANON-O2202USA001410

PATIENT
  Sex: Female
  Weight: 91.61 kg

DRUGS (1)
  1. NEXPLANON [Suspect]
     Active Substance: ETONOGESTREL
     Dosage: 1 IMPLANT (68 MG) IN LEFT UPPER ARM
     Route: 059
     Dates: start: 20211007

REACTIONS (11)
  - Device expulsion [Not Recovered/Not Resolved]
  - Implant site infection [Unknown]
  - Implant site scar [Unknown]
  - Implant site induration [Unknown]
  - Implant site fibrosis [Unknown]
  - Complication of device removal [Not Recovered/Not Resolved]
  - Complication of device removal [Not Recovered/Not Resolved]
  - Complication of device removal [Not Recovered/Not Resolved]
  - Complication of device removal [Not Recovered/Not Resolved]
  - Device breakage [Not Recovered/Not Resolved]
  - Complication associated with device [Not Recovered/Not Resolved]

NARRATIVE: CASE EVENT DATE: 20210101
